FAERS Safety Report 23668195 (Version 1)
Quarter: 2024Q1

REPORT INFORMATION
  Report Type: Spontaneous
  Country: US (occurrence: None)
  Receive Date: 20240322
  Receipt Date: 20240322
  Transmission Date: 20240409
  Serious: Yes (unspecified)
  Sender: FDA-Public Use
  Company Number: None

PATIENT
  Age: 79 Year
  Sex: Female

DRUGS (1)
  1. LENALIDOMIDE [Suspect]
     Active Substance: LENALIDOMIDE
     Indication: Plasma cell myeloma
     Dosage: FREQUENCY : DAILY;?
     Route: 048
     Dates: start: 20180829

REACTIONS (6)
  - Headache [None]
  - Pruritus [None]
  - Hypoaesthesia [None]
  - Fatigue [None]
  - Peripheral swelling [None]
  - Palpitations [None]

NARRATIVE: CASE EVENT DATE: 20240322
